FAERS Safety Report 8415372-0 (Version None)
Quarter: 2012Q2

REPORT INFORMATION
  Report Type: 
  Country: None (occurrence: None)
  Receive Date: 20120323
  Receipt Date: 20111206
  Transmission Date: 20120825
  Serious: Yes (Other)
  Sender: FDA-Public Use
  Company Number: 163-21880-11121018

PATIENT
  Age: 71 Year
  Sex: Male

DRUGS (9)
  1. ALLOPURINOL [Concomitant]
  2. VELCADE [Concomitant]
  3. DXS (OTHER THERAPEUTIC PRODUCTS) (UNKNOWN) [Concomitant]
  4. LENALIDOMIDE [Suspect]
     Indication: MULTIPLE MYELOMA
     Dosage: 15 MG, 21/7, PO 10 MG, 21/7, PO
     Route: 048
     Dates: start: 20111011, end: 20110101
  5. LENALIDOMIDE [Suspect]
     Indication: MULTIPLE MYELOMA
     Dosage: 15 MG, 21/7, PO 10 MG, 21/7, PO
     Route: 048
     Dates: start: 20110101
  6. CHLORTHALIDONE (CHLORTALIDONE) (UNKNOWN) [Concomitant]
  7. FOSINOPRIL (FOSINOPRIL) (UNKNOWN) [Concomitant]
  8. NADOLOL [Concomitant]
  9. METFORMIN HCL [Concomitant]

REACTIONS (2)
  - THROMBOCYTOPENIA [None]
  - ANAEMIA [None]
